FAERS Safety Report 10920655 (Version 1)
Quarter: 2015Q1

REPORT INFORMATION
  Report Type: Spontaneous
  Country: US (occurrence: None)
  Receive Date: 20150313
  Receipt Date: 20150313
  Transmission Date: 20150721
  Serious: No
  Sender: FDA-Public Use
  Company Number: None

PATIENT
  Age: 65 Year
  Sex: Female
  Weight: 68.04 kg

DRUGS (2)
  1. AZITHROMYCIN [Suspect]
     Active Substance: AZITHROMYCIN ANHYDROUS
     Indication: SINUSITIS
     Dosage: TAKEN BY MOUTH 2 PILLS ON DAY 1 THEN 1 PILL
     Route: 048
     Dates: start: 20141217, end: 20141219
  2. AZITHROMYCIN [Suspect]
     Active Substance: AZITHROMYCIN ANHYDROUS
     Indication: BRONCHITIS
     Dosage: TAKEN BY MOUTH 2 PILLS ON DAY 1 THEN 1 PILL
     Route: 048
     Dates: start: 20141217, end: 20141219

REACTIONS (21)
  - Abdominal pain upper [None]
  - Pruritus [None]
  - Paraesthesia [None]
  - Tongue coated [None]
  - Eye irritation [None]
  - Cough [None]
  - Diarrhoea [None]
  - Dysgeusia [None]
  - Anger [None]
  - Fatigue [None]
  - Headache [None]
  - Anxiety [None]
  - Lacrimation decreased [None]
  - Agitation [None]
  - Decreased appetite [None]
  - Dry mouth [None]
  - Middle insomnia [None]
  - Aptyalism [None]
  - Mood swings [None]
  - Dry skin [None]
  - Dehydration [None]

NARRATIVE: CASE EVENT DATE: 20141217
